FAERS Safety Report 12204539 (Version 8)
Quarter: 2016Q4

REPORT INFORMATION
  Report Type: Spontaneous
  Country: US (occurrence: US)
  Receive Date: 20160323
  Receipt Date: 20161221
  Transmission Date: 20170207
  Serious: Yes (Death)
  Sender: FDA-Public Use
  Company Number: US-PFIZER INC-2016149219

PATIENT
  Age: 53 Year
  Sex: Male
  Weight: 81 kg

DRUGS (5)
  1. HUMULIN R [Concomitant]
     Active Substance: INSULIN HUMAN
     Dosage: UNK
  2. SUTENT [Suspect]
     Active Substance: SUNITINIB MALATE
     Dosage: 50 MG, DAILY
     Route: 048
     Dates: start: 20150130
  3. GLUCOTROL XL [Concomitant]
     Active Substance: GLIPIZIDE
     Dosage: UNK
  4. SUTENT [Suspect]
     Active Substance: SUNITINIB MALATE
     Dosage: 50 MG, DAILY
     Route: 048
     Dates: start: 20150130
  5. SUTENT [Suspect]
     Active Substance: SUNITINIB MALATE
     Indication: RENAL CANCER
     Dosage: 50 MG, DAILY
     Route: 048
     Dates: start: 20150130

REACTIONS (10)
  - Death [Fatal]
  - Blood glucose increased [Unknown]
  - Pain in extremity [Unknown]
  - Decreased appetite [Unknown]
  - Nausea [Unknown]
  - Arthralgia [Unknown]
  - Asthenia [Unknown]
  - Bone pain [Unknown]
  - Abscess [Unknown]
  - Vomiting [Unknown]

NARRATIVE: CASE EVENT DATE: 20161124
